FAERS Safety Report 10051009 (Version 1)
Quarter: 2014Q2

REPORT INFORMATION
  Report Type: Report from Study
  Country: GB (occurrence: GB)
  Receive Date: 20140401
  Receipt Date: 20140401
  Transmission Date: 20141212
  Serious: Yes (Other)
  Sender: FDA-Public Use
  Company Number: GB-AMGEN-GBRCT2014022502

PATIENT
  Age: 63 Year
  Sex: Female
  Weight: 56 kg

DRUGS (9)
  1. ETANERCEPT [Suspect]
     Indication: PRODUCT USED FOR UNKNOWN INDICATION
     Dosage: 50 MG, QWK
     Route: 065
     Dates: start: 20120403, end: 20120517
  2. CETIRIZINE [Concomitant]
     Dosage: UNK
     Dates: start: 20000115
  3. INDAPAMIDE [Concomitant]
     Dosage: UNK
     Dates: start: 20110515
  4. OMEPRAZOLE [Concomitant]
     Dosage: UNK
     Dates: start: 20110515
  5. SIMVASTATIN [Concomitant]
     Dosage: UNK
     Dates: start: 20110515
  6. AMITRIPTYLINE [Concomitant]
     Dosage: UNK
     Dates: start: 20120701
  7. CYCLIZINE [Concomitant]
     Dosage: UNK
     Dates: start: 20120701
  8. LORAZEPAM [Concomitant]
     Dosage: UNK
     Dates: start: 20120701
  9. ORAMORPH [Concomitant]
     Dosage: UNK
     Dates: start: 20120701

REACTIONS (1)
  - Breast cancer metastatic [Not Recovered/Not Resolved]
